FAERS Safety Report 10926735 (Version 1)
Quarter: 2015Q1

REPORT INFORMATION
  Report Type: Spontaneous
  Country: GB (occurrence: GB)
  Receive Date: 20150318
  Receipt Date: 20150318
  Transmission Date: 20150721
  Serious: Yes (Other)
  Sender: FDA-Public Use
  Company Number: PHHY2015GB028595

PATIENT
  Age: 68 Year
  Sex: Female
  Weight: 44.39 kg

DRUGS (2)
  1. ATORVASTATIN [Concomitant]
     Active Substance: ATORVASTATIN
     Indication: PRODUCT USED FOR UNKNOWN INDICATION
     Dosage: 10 MG, QD
     Route: 065
  2. COCODAMOL [Suspect]
     Active Substance: ACETAMINOPHEN\CODEINE PHOSPHATE
     Indication: PAIN
     Dosage: 1000 MG, Q6H
     Route: 048
     Dates: start: 20150216, end: 20150217

REACTIONS (6)
  - Rash [Recovering/Resolving]
  - Reaction to drug excipients [Recovering/Resolving]
  - Mouth ulceration [Recovering/Resolving]
  - Oral mucosal erythema [Recovering/Resolving]
  - Vulvovaginal erythema [Recovering/Resolving]
  - Vulval ulceration [Recovering/Resolving]

NARRATIVE: CASE EVENT DATE: 20150217
